FAERS Safety Report 11758263 (Version 2)
Quarter: 2016Q2

REPORT INFORMATION
  Report Type: Spontaneous
  Country: US (occurrence: US)
  Receive Date: 20151120
  Receipt Date: 20160523
  Transmission Date: 20160815
  Serious: Yes (Other)
  Sender: FDA-Public Use
  Company Number: PHHY2015US150611

PATIENT
  Age: 35 Year
  Sex: Female

DRUGS (3)
  1. BACLOFEN INTRATHECAL [Suspect]
     Active Substance: BACLOFEN
     Indication: PRODUCT USED FOR UNKNOWN INDICATION
     Dosage: 2.667 UG, QD
     Route: 037
  2. METHADONE [Suspect]
     Active Substance: METHADONE HYDROCHLORIDE
     Indication: PRODUCT USED FOR UNKNOWN INDICATION
     Dosage: 5 MG, TID
     Route: 048
  3. MORPHINE [Suspect]
     Active Substance: MORPHINE
     Indication: PRODUCT USED FOR UNKNOWN INDICATION
     Dosage: 4 MG, QD
     Route: 037

REACTIONS (14)
  - Hypoaesthesia [Unknown]
  - Movement disorder [Unknown]
  - Disturbance in attention [Unknown]
  - Hypoaesthesia oral [Unknown]
  - Sensory disturbance [Unknown]
  - No therapeutic response [Unknown]
  - Arthralgia [Unknown]
  - Spinal cord injury [Unknown]
  - Muscle spasms [Unknown]
  - Pain [Unknown]
  - Myalgia [Unknown]
  - Burning sensation [Unknown]
  - Nerve compression [Unknown]
  - Synovial cyst [Unknown]

NARRATIVE: CASE EVENT DATE: 20150416
